FAERS Safety Report 4333429-0 (Version None)
Quarter: 2004Q1

REPORT INFORMATION
  Report Type: 
  Country: None (occurrence: None)
  Receive Date: 20040329
  Receipt Date: 20031216
  Transmission Date: 20041129
  Serious: No
  Sender: FDA-Public Use
  Company Number: 03P-163-0244845-00

PATIENT
  Age: 62 Year
  Sex: Female
  Weight: 62.5964 kg

DRUGS (5)
  1. HUMIRA [Suspect]
     Indication: RHEUMATOID ARTHRITIS
     Dosage: 40 MG, 1 IN 2 WK, SUBCUTANEOUS
     Route: 058
     Dates: start: 20031126
  2. ISOSORBIDE [Concomitant]
  3. CLOPIDOGREL BISULFATE [Concomitant]
  4. SIMVASTATIN [Concomitant]
  5. GLYCERYL TRINITRATE [Concomitant]

REACTIONS (3)
  - COUGH [None]
  - DYSPNOEA [None]
  - WHEEZING [None]
